FAERS Safety Report 18870829 (Version 2)
Quarter: 2021Q1

REPORT INFORMATION
  Report Type: Spontaneous
  Country: ES (occurrence: ES)
  Receive Date: 20210210
  Receipt Date: 20210224
  Transmission Date: 20210420
  Serious: Yes (Life-Threatening, Hospitalization, Other)
  Sender: FDA-Public Use
  Company Number: ES-AUROBINDO-AUR-APL-2021-005225

PATIENT
  Age: 30 Year
  Sex: Male

DRUGS (2)
  1. SILDENAFIL. [Suspect]
     Active Substance: SILDENAFIL
     Indication: ERECTILE DYSFUNCTION
     Dosage: UNK UNK, ONCE A DAY, UPTO 200 MG, HIGH DOSE
     Route: 065
  2. SILDENAFIL. [Suspect]
     Active Substance: SILDENAFIL
     Dosage: 50 MILLIGRAM
     Route: 048

REACTIONS (5)
  - Self-medication [Unknown]
  - Bradyphrenia [Unknown]
  - Status epilepticus [Recovered/Resolved]
  - Myoclonus [Unknown]
  - Ocular discomfort [Unknown]
